FAERS Safety Report 9174216 (Version 4)
Quarter: 2013Q4

REPORT INFORMATION
  Report Type: Spontaneous
  Country: SG (occurrence: None)
  Receive Date: 20130318
  Receipt Date: 20131031
  Transmission Date: 20140711
  Serious: Yes (Hospitalization)
  Sender: FDA-Public Use
  Company Number: SYM-2013-01658

PATIENT
  Age: 29 Year
  Sex: Male

DRUGS (9)
  1. 5-FU [Suspect]
     Indication: COLORECTAL CANCER METASTATIC
     Dosage: 800 MG, EVERY OTHER WEEK, INTRAVENOUS BOLUS
     Route: 040
     Dates: start: 20121112, end: 20121112
  2. BLINDED THERAPY [Suspect]
     Indication: COLORECTAL CANCER METASTATIC
     Dosage: 476 MG, EVERY OTHER WEEK, INTRAVENOUS DRIP
     Route: 041
     Dates: start: 20121112, end: 20121112
  3. IRINOTECAN [Suspect]
     Indication: COLORECTAL CANCER METASTATIC
     Dosage: 360 MG, EVERY OTHER WEEK, INTRAVENOUS DRIP
     Route: 041
     Dates: start: 20121112, end: 20121112
  4. LEUCOVORIN [Suspect]
     Indication: COLORECTAL CANCER METASTATIC
     Dosage: EVERY OTHER WEEK, INTRAVENOUS DRIP
     Route: 041
     Dates: start: 20121112, end: 20121112
  5. METFORMIN HYDROCHLORIDE (METFORMIN HYDROCHLORIDE) (METFORMIN HYDROCHLORIDE) [Concomitant]
  6. GLICLAZIDE (GLICLAZIDE) (GLICLAZIDE) [Concomitant]
  7. OMEPRAZOLE (OMEPRAZOLE) (OMEPRAZOLE) [Concomitant]
  8. TERBINAFINE [Concomitant]
  9. INSULIN LMIXTARD (INSULIN INIT) (INSULIN PORCINE, INSULIN ISOPHANE PORCINE) [Concomitant]

REACTIONS (6)
  - Device related infection [None]
  - Subclavian vein thrombosis [None]
  - Deep vein thrombosis [None]
  - Local swelling [None]
  - Neck pain [None]
  - Disease progression [None]
